FAERS Safety Report 14637896 (Version 3)
Quarter: 2018Q2

REPORT INFORMATION
  Report Type: Report from Study
  Country: BR (occurrence: BR)
  Receive Date: 20180314
  Receipt Date: 20180601
  Transmission Date: 20180711
  Serious: Yes (Hospitalization, Other)
  Sender: FDA-Public Use
  Company Number: BR-TAKEDA-2017TUS012430

PATIENT
  Age: 27 Year
  Sex: Male
  Weight: 61.5 kg

DRUGS (1)
  1. VEDOLIZUMAB [Suspect]
     Active Substance: VEDOLIZUMAB
     Indication: CROHN^S DISEASE
     Dosage: UNK
     Route: 042
     Dates: start: 20170201

REACTIONS (9)
  - Short-bowel syndrome [Recovering/Resolving]
  - Food poisoning [Unknown]
  - Intestinal stenosis [Recovering/Resolving]
  - Off label use [Unknown]
  - Fistula [Recovering/Resolving]
  - Weight decreased [Recovered/Resolved]
  - Vomiting [Recovered/Resolved]
  - Nausea [Recovered/Resolved]
  - Surgery [Unknown]

NARRATIVE: CASE EVENT DATE: 20170606
